FAERS Safety Report 6097470-2 (Version None)
Quarter: 2009Q1

REPORT INFORMATION
  Report Type: 
  Country: None (occurrence: None)
  Receive Date: 20090227
  Receipt Date: 20081003
  Transmission Date: 20090719
  Serious: No
  Sender: FDA-Public Use
  Company Number: A0738432A

PATIENT
  Age: 62 Year
  Sex: Female

DRUGS (18)
  1. IMITREX [Suspect]
     Indication: MIGRAINE
     Dosage: 6MG AS REQUIRED
     Route: 058
  2. GSK AUTOINJECTOR [Suspect]
  3. IMITREX [Suspect]
     Route: 048
  4. IMITREX [Suspect]
     Route: 045
  5. METFORMIN [Concomitant]
  6. WELLBUTRIN [Concomitant]
  7. VENLAFAXINE HCL [Concomitant]
  8. LIPITOR [Concomitant]
  9. SYNTHROID [Concomitant]
  10. ZYRTEC [Concomitant]
  11. ZOLPIDEM [Concomitant]
  12. PREMARIN [Concomitant]
  13. CLOBETASOL PROPIONATE [Concomitant]
  14. HYDROCORTISONE VALERATE [Concomitant]
  15. KETOCONAZOLE [Concomitant]
  16. DILAUDID [Concomitant]
  17. FIORINAL [Concomitant]
  18. ATIVAN [Concomitant]

REACTIONS (4)
  - DRUG ADMINISTRATION ERROR [None]
  - DRUG INEFFECTIVE [None]
  - MIGRAINE [None]
  - PRODUCT QUALITY ISSUE [None]
